FAERS Safety Report 5722163-8 (Version None)
Quarter: 2008Q2

REPORT INFORMATION
  Report Type: 
  Country: None (occurrence: None)
  Receive Date: 20080429
  Receipt Date: 20080421
  Transmission Date: 20081010
  Serious: Yes (Other)
  Sender: FDA-Public Use
  Company Number: US-PFIZER INC-2008035451

PATIENT
  Sex: Female
  Weight: 63.5 kg

DRUGS (11)
  1. GENOTROPIN [Suspect]
     Indication: HYPOPITUITARISM
     Route: 058
     Dates: start: 20080410, end: 20080419
  2. CYMBALTA [Concomitant]
     Dosage: DAILY DOSE:60MG
  3. WELLBUTRIN [Concomitant]
  4. SUBUTEX [Concomitant]
     Dosage: DAILY DOSE:4MG
  5. VALTREX [Concomitant]
     Indication: FATIGUE
     Dosage: DAILY DOSE:500MG
  6. FISH OIL [Concomitant]
  7. THYROID TAB [Concomitant]
     Indication: HYPOTHYROIDISM
     Dosage: DAILY DOSE:30MG
  8. VITAMIN CAP [Concomitant]
  9. MILK THISTLE [Concomitant]
  10. LUCIDRIL [Concomitant]
  11. METFORMIN HCL [Concomitant]

REACTIONS (1)
  - COMA [None]
